FAERS Safety Report 21326017 (Version 5)
Quarter: 2022Q4

REPORT INFORMATION
  Report Type: Report from Study
  Country: US (occurrence: US)
  Receive Date: 20220913
  Receipt Date: 20221212
  Transmission Date: 20230113
  Serious: No
  Sender: FDA-Public Use
  Company Number: US-NOVARTISTESTPH-NVSC2022US205088

PATIENT
  Sex: Female

DRUGS (1)
  1. KESIMPTA [Suspect]
     Active Substance: OFATUMUMAB
     Indication: Product used for unknown indication
     Dosage: UNK
     Route: 065

REACTIONS (6)
  - Pain in extremity [Recovered/Resolved]
  - Fatigue [Unknown]
  - Sensory loss [Recovered/Resolved]
  - Pain in extremity [Unknown]
  - Nausea [Unknown]
  - Drug ineffective [Unknown]
